FAERS Safety Report 5273750-5 (Version None)
Quarter: 2007Q1

REPORT INFORMATION
  Report Type: 
  Country: None (occurrence: None)
  Receive Date: 20070321
  Receipt Date: 20070321
  Transmission Date: 20070707
  Serious: Yes (Other)
  Sender: FDA-Public Use
  Company Number: None

PATIENT

DRUGS (2)
  1. FOSAMAX [Suspect]
     Dosage: 70 ORAL
     Route: 048
  2. BONIVA [Suspect]
     Dosage: 150 ORAL
     Route: 048

REACTIONS (1)
  - OSTEONECROSIS [None]
